FAERS Safety Report 18657546 (Version 1)
Quarter: 2020Q4

REPORT INFORMATION
  Report Type: Spontaneous
  Country: DE (occurrence: DE)
  Receive Date: 20201224
  Receipt Date: 20201224
  Transmission Date: 20210114
  Serious: Yes (Hospitalization, Other)
  Sender: FDA-Public Use
  Company Number: DE-AMGEN-DEUSP2020206259

PATIENT
  Age: 74 Year
  Sex: Female
  Weight: 108 kg

DRUGS (5)
  1. PEMBROLIZUMAB. [Concomitant]
     Active Substance: PEMBROLIZUMAB
     Dosage: 250 MILLIGRAM
     Route: 042
     Dates: start: 20201105
  2. NEULASTA [Suspect]
     Active Substance: PEGFILGRASTIM
     Indication: PROPHYLAXIS
     Dosage: 6 MILLIGRAM, AFTER CHEMO
     Route: 058
     Dates: start: 20201105
  3. CARBOPLATIN. [Concomitant]
     Active Substance: CARBOPLATIN
     Dosage: AUCS 50%DR
     Route: 042
     Dates: start: 20201105
  4. PEMETREXED. [Concomitant]
     Active Substance: PEMETREXED
     Dosage: 250 MILLIGRAM/SQ. METER
     Route: 042
     Dates: start: 20201105
  5. FORTECORTIN [DEXAMETHASONE] [Concomitant]
     Active Substance: DEXAMETHASONE
     Dosage: 20 MILLIGRAM
     Route: 042
     Dates: start: 20201105

REACTIONS (5)
  - Constipation [Not Recovered/Not Resolved]
  - Product delivery mechanism issue [Unknown]
  - Pancytopenia [Not Recovered/Not Resolved]
  - Chills [Not Recovered/Not Resolved]
  - Decreased appetite [Not Recovered/Not Resolved]

NARRATIVE: CASE EVENT DATE: 2020
